FAERS Safety Report 5739405-5 (Version None)
Quarter: 2008Q2

REPORT INFORMATION
  Report Type: 
  Country: None (occurrence: None)
  Receive Date: 20080515
  Receipt Date: 20080505
  Transmission Date: 20081010
  Serious: Yes (Other)
  Sender: FDA-Public Use
  Company Number: DE-PFIZER INC-2008011395

PATIENT
  Sex: Male

DRUGS (4)
  1. REVATIO [Suspect]
     Indication: POSTOPERATIVE CARE
  2. ZIAGEN [Concomitant]
  3. RETROVIR [Concomitant]
  4. ANTIINFECTIVES [Concomitant]

REACTIONS (3)
  - RECTAL CANCER [None]
  - SIGNET-RING CELL CARCINOMA [None]
  - VISUAL DISTURBANCE [None]
